FAERS Safety Report 4889747-0 (Version None)
Quarter: 2006Q1

REPORT INFORMATION
  Report Type: 
  Country: None (occurrence: None)
  Receive Date: 20060124
  Receipt Date: 20050317
  Transmission Date: 20060701
  Serious: Yes (Hospitalization, Other)
  Sender: FDA-Public Use
  Company Number: US-MERCK-0503USA04284

PATIENT
  Age: 57 Year
  Sex: Female
  Weight: 82 kg

DRUGS (16)
  1. VIOXX [Suspect]
     Route: 048
     Dates: start: 20010101
  2. COUMADIN [Concomitant]
     Route: 065
  3. PRAVACHOL [Concomitant]
     Route: 065
  4. ZYRTEC [Concomitant]
     Route: 065
  5. PLENDIL [Concomitant]
     Route: 065
  6. EVISTA [Concomitant]
     Route: 065
  7. PEPCID [Concomitant]
     Route: 065
  8. VEETIDS [Concomitant]
     Route: 065
  9. TRIMOX [Concomitant]
     Route: 065
  10. VICODIN [Concomitant]
     Route: 065
  11. MIACALCIN [Concomitant]
     Route: 065
  12. CARISOPRODOL [Concomitant]
     Route: 065
  13. PREMARIN [Concomitant]
     Route: 065
  14. [THERAPY UNSPECIFIED] [Concomitant]
     Route: 065
  15. AZMACORT [Concomitant]
     Route: 065
  16. CEPHALEXIN [Concomitant]
     Route: 065

REACTIONS (11)
  - ACUTE MYOCARDIAL INFARCTION [None]
  - CEREBROVASCULAR ACCIDENT [None]
  - CHEST PAIN [None]
  - CORONARY ARTERY DISEASE [None]
  - FATIGUE [None]
  - HYPERCHOLESTEROLAEMIA [None]
  - HYPOAESTHESIA [None]
  - JOINT INJURY [None]
  - RETINAL HAEMORRHAGE [None]
  - RETINAL VASCULAR THROMBOSIS [None]
  - RETINAL VEIN OCCLUSION [None]
